FAERS Safety Report 21371233 (Version 2)
Quarter: 2022Q3

REPORT INFORMATION
  Report Type: Report from Study
  Country: GB (occurrence: GB)
  Receive Date: 20220923
  Receipt Date: 20220928
  Transmission Date: 20221026
  Serious: Yes (Life-Threatening, Hospitalization)
  Sender: FDA-Public Use
  Company Number: GB-EXELIXIS-XL18422056083

PATIENT
  Age: 63 Year
  Sex: Male

DRUGS (23)
  1. CABOZANTINIB [Suspect]
     Active Substance: CABOZANTINIB
     Indication: Hormone-refractory prostate cancer
     Dosage: 40 MG, QD
     Route: 048
     Dates: start: 20220623, end: 20220712
  2. CABOZANTINIB [Suspect]
     Active Substance: CABOZANTINIB
     Dosage: 40 MG, QD
     Route: 048
     Dates: start: 20220713, end: 20220802
  3. CABOZANTINIB [Suspect]
     Active Substance: CABOZANTINIB
     Dosage: 40 MG, QD
     Route: 048
     Dates: start: 20220803, end: 20220814
  4. ATEZOLIZUMAB [Suspect]
     Active Substance: ATEZOLIZUMAB
     Indication: Hormone-refractory prostate cancer
     Dosage: 1200 MG, Q3WEEKS
     Route: 042
     Dates: start: 20220623
  5. ATEZOLIZUMAB [Suspect]
     Active Substance: ATEZOLIZUMAB
     Dosage: 1200 MG, Q3WEEKS
     Route: 042
     Dates: start: 20220713
  6. ATEZOLIZUMAB [Suspect]
     Active Substance: ATEZOLIZUMAB
     Dosage: 1200 MG, Q3WEEKS
     Route: 042
     Dates: start: 20220803
  7. ATEZOLIZUMAB [Suspect]
     Active Substance: ATEZOLIZUMAB
     Dosage: 1200 MG, Q3WEEKS
     Route: 042
     Dates: start: 20220824
  8. ASPIRIN [Concomitant]
     Active Substance: ASPIRIN
     Indication: Myocardial ischaemia
     Dates: start: 20160101
  9. BENDROFLUMETHIAZIDE [Concomitant]
     Active Substance: BENDROFLUMETHIAZIDE
     Indication: Hypertension
     Dates: start: 20021015
  10. BENZYDAMINE [Concomitant]
     Active Substance: BENZYDAMINE
     Indication: Mouth ulceration
     Dates: start: 20220401
  11. CODEINE [Concomitant]
     Active Substance: CODEINE
     Indication: Pain
     Dates: start: 20220718
  12. CLOBETASOL [Concomitant]
     Active Substance: CLOBETASOL
     Indication: Palmar-plantar erythrodysaesthesia syndrome
     Dates: start: 20220817
  13. DILTIAZEM [Concomitant]
     Active Substance: DILTIAZEM
     Indication: Hypertension
     Dates: start: 20030201
  14. GABAPENTIN [Concomitant]
     Active Substance: GABAPENTIN
     Indication: Palmar-plantar erythrodysaesthesia syndrome
     Dates: start: 20220817
  15. NITROGLYCERIN [Concomitant]
     Active Substance: NITROGLYCERIN
     Indication: Myocardial ischaemia
     Dates: start: 20160101
  16. HYPROMELLOSES [Concomitant]
     Active Substance: HYPROMELLOSES
     Indication: Blepharitis
     Dates: start: 20200601
  17. ISOSORBIDE MONONITRATE [Concomitant]
     Active Substance: ISOSORBIDE MONONITRATE
     Indication: Hypertension
     Dates: start: 20220616
  18. LOSARTAN [Concomitant]
     Active Substance: LOSARTAN
     Indication: Hypertension
     Dates: start: 20040801
  19. MICONAZOLE [Concomitant]
     Active Substance: MICONAZOLE
     Indication: Fungal infection
     Dates: start: 20180501
  20. UREA [Concomitant]
     Active Substance: UREA
     Indication: Palmar-plantar erythrodysaesthesia syndrome
     Dates: start: 20220802
  21. XAILIN [Concomitant]
     Indication: Blepharitis
     Dates: start: 20200601
  22. ZOLADEX [Concomitant]
     Active Substance: GOSERELIN ACETATE
     Indication: Hormone suppression therapy
     Dates: start: 20140101
  23. NYSTATIN [Concomitant]
     Active Substance: NYSTATIN
     Indication: Oral candidiasis
     Dates: start: 20220824

REACTIONS (1)
  - Appendicitis perforated [Recovered/Resolved with Sequelae]

NARRATIVE: CASE EVENT DATE: 20220920
